FAERS Safety Report 6345648-2 (Version None)
Quarter: 2009Q3

REPORT INFORMATION
  Report Type: 
  Country: None (occurrence: None)
  Receive Date: 20090909
  Receipt Date: 20090831
  Transmission Date: 20100115
  Serious: Yes (Other)
  Sender: FDA-Public Use
  Company Number: US-AMGEN-QUU360705

PATIENT
  Sex: Male
  Weight: 102.2 kg

DRUGS (4)
  1. ENBREL [Suspect]
     Indication: RHEUMATOID ARTHRITIS
     Route: 058
     Dates: start: 20050818
  2. METHOTREXATE [Concomitant]
     Dates: start: 20041013
  3. CELEBREX [Concomitant]
     Dates: start: 20060110
  4. FOLIC ACID [Concomitant]
     Dates: start: 20041013

REACTIONS (1)
  - SCLERODERMA [None]
